FAERS Safety Report 23867286 (Version 1)
Quarter: 2024Q2

REPORT INFORMATION
  Report Type: Spontaneous
  Country: US (occurrence: US)
  Receive Date: 20240517
  Receipt Date: 20240517
  Transmission Date: 20240716
  Serious: Yes (Other)
  Sender: FDA-Public Use
  Company Number: US-SANDOZ-SDZ2024US049231

PATIENT
  Sex: Male

DRUGS (1)
  1. ALPRAZOLAM [Suspect]
     Active Substance: ALPRAZOLAM
     Indication: Product used for unknown indication
     Dosage: UNK, TIW
     Route: 065

REACTIONS (8)
  - Syncope [Unknown]
  - Fatigue [Unknown]
  - Anxiety [Unknown]
  - Panic attack [Unknown]
  - Peripheral coldness [Unknown]
  - Dizziness [Unknown]
  - Withdrawal syndrome [Unknown]
  - Product substitution issue [Unknown]
